FAERS Safety Report 18549816 (Version 2)
Quarter: 2020Q4

REPORT INFORMATION
  Report Type: Spontaneous
  Country: IT (occurrence: IT)
  Receive Date: 20201126
  Receipt Date: 20201203
  Transmission Date: 20210114
  Serious: Yes (Hospitalization)
  Sender: FDA-Public Use
  Company Number: IT-PFIZER INC-2020465566

PATIENT
  Age: 63 Year
  Sex: Female

DRUGS (5)
  1. LUCEN [ESOMEPRAZOLE SODIUM] [Concomitant]
     Dosage: UNK
  2. DIBASE [Concomitant]
     Active Substance: CHOLECALCIFEROL
     Dosage: UNK
  3. DELTACORTENE [Concomitant]
     Active Substance: PREDNISONE
     Dosage: 5 MG
  4. ZESSLY [Suspect]
     Active Substance: INFLIXIMAB
     Indication: CROHN^S DISEASE
     Dosage: 300 MG, TOTAL
     Route: 042
     Dates: start: 20200814, end: 20200814
  5. CARDICOR [Concomitant]
     Active Substance: BISOPROLOL
     Dosage: 1.25 MG

REACTIONS (7)
  - Pyrexia [Recovered/Resolved]
  - Pain in extremity [Recovered/Resolved]
  - Erythema [Recovered/Resolved]
  - Lip swelling [Recovered/Resolved]
  - Face oedema [Recovered/Resolved]
  - Oropharyngeal pain [Recovered/Resolved]
  - Pain in jaw [Recovered/Resolved]

NARRATIVE: CASE EVENT DATE: 20200822
